FAERS Safety Report 11986334 (Version 2)
Quarter: 2016Q1

REPORT INFORMATION
  Report Type: Spontaneous
  Country: US (occurrence: US)
  Receive Date: 20160202
  Receipt Date: 20160218
  Transmission Date: 20160526
  Serious: Yes (Death, Other)
  Sender: FDA-Public Use
  Company Number: US-ROCHE-1628815

PATIENT
  Sex: Male

DRUGS (6)
  1. LORAZEPAM. [Concomitant]
     Active Substance: LORAZEPAM
  2. HYOSCYAMINE. [Concomitant]
     Active Substance: HYOSCYAMINE
  3. MORPHINE [Concomitant]
     Active Substance: MORPHINE
  4. MIRTAZAPINE. [Concomitant]
     Active Substance: MIRTAZAPINE
  5. ESBRIET [Suspect]
     Active Substance: PIRFENIDONE
     Indication: IDIOPATHIC PULMONARY FIBROSIS
     Dosage: 3 CAPSULES (801MG) 3 TIMES DAILY
     Route: 048
     Dates: start: 20150311
  6. LEVOTHYROXINE. [Concomitant]
     Active Substance: LEVOTHYROXINE

REACTIONS (7)
  - Pain [Unknown]
  - Ill-defined disorder [Unknown]
  - Decreased appetite [Unknown]
  - Death [Fatal]
  - Bedridden [Unknown]
  - Dyspnoea [Unknown]
  - Dizziness [Unknown]
